FAERS Safety Report 4566572-1 (Version None)
Quarter: 2005Q1

REPORT INFORMATION
  Report Type: 
  Country: None (occurrence: None)
  Receive Date: 20050201
  Receipt Date: 20050106
  Transmission Date: 20050727
  Serious: Yes (Death, Hospitalization)
  Sender: FDA-Public Use
  Company Number: JP-MERCK-0501USA00916

PATIENT
  Age: 66 Year
  Sex: Male

DRUGS (8)
  1. PEPCID RPD [Suspect]
     Indication: GASTRIC ULCER
     Route: 048
     Dates: start: 20030714
  2. PHENOBAL [Suspect]
     Indication: PROPHYLAXIS
     Route: 048
     Dates: start: 20030624, end: 20030714
  3. PHENOBAL [Concomitant]
     Route: 030
     Dates: start: 20030622, end: 20030624
  4. CEFAMEZIN [Concomitant]
     Indication: ANTIBACTERIAL PROPHYLAXIS
     Route: 042
     Dates: start: 20030622, end: 20030629
  5. CEFZON [Concomitant]
     Indication: ANTIBACTERIAL PROPHYLAXIS
     Route: 048
     Dates: start: 20030714
  6. VOLTAREN [Concomitant]
     Indication: ANTIPYRESIS
     Route: 048
     Dates: start: 20030714
  7. VOLTAREN [Concomitant]
     Indication: ANALGESIC EFFECT
     Route: 048
     Dates: start: 20030714
  8. SELBEX [Concomitant]
     Indication: GASTRITIS
     Route: 048
     Dates: start: 20030714

REACTIONS (2)
  - DISSEMINATED INTRAVASCULAR COAGULATION [None]
  - TOXIC EPIDERMAL NECROLYSIS [None]
